FAERS Safety Report 25405399 (Version 8)
Quarter: 2025Q3

REPORT INFORMATION
  Report Type: Spontaneous
  Country: US (occurrence: US)
  Receive Date: 20250606
  Receipt Date: 20250825
  Transmission Date: 20251020
  Serious: Yes (Death, Hospitalization, Other)
  Sender: NOVARTIS
  Company Number: US-002147023-NVSC2025US090809

PATIENT
  Age: 78 Year
  Sex: Male

DRUGS (9)
  1. PLUVICTO [Suspect]
     Active Substance: LUTETIUM LU-177 VIPIVOTIDE TETRAXETAN
     Indication: Product used for unknown indication
     Route: 065
  2. EMPAGLIFLOZIN [Concomitant]
     Active Substance: EMPAGLIFLOZIN
     Indication: Product used for unknown indication
     Dosage: 1 DOSAGE FORM, QD
     Route: 048
  3. LISINOPRIL [Concomitant]
     Active Substance: LISINOPRIL
     Indication: Hypertension
     Dosage: 1 DOSAGE FORM, QD
     Route: 048
  4. PIOGLITAZONE [Concomitant]
     Active Substance: PIOGLITAZONE
     Indication: Type 2 diabetes mellitus
     Dosage: 1 DOSAGE FORM, QD
     Route: 048
  5. SIMVASTATIN [Concomitant]
     Active Substance: SIMVASTATIN
     Indication: Lipids increased
     Dosage: 1 DOSAGE FORM, QD
     Route: 048
  6. VITAMIN B12 [Concomitant]
     Active Substance: CYANOCOBALAMIN
     Indication: Product used for unknown indication
     Dosage: 2 DOSAGE FORM, QD (500MCG)
     Route: 048
  7. VITAMIN D3 [Concomitant]
     Active Substance: CHOLECALCIFEROL
     Indication: Product used for unknown indication
     Dosage: UNK, QD (50 MCG (2000 TAKE 2 TABLETS BY UT) CHEW)
     Route: 048
  8. JARDIANCE [Concomitant]
     Active Substance: EMPAGLIFLOZIN
     Indication: Type 2 diabetes mellitus
     Dosage: 1 DOSAGE FORM, QD
     Route: 048
  9. METFORMIN [Concomitant]
     Active Substance: METFORMIN HYDROCHLORIDE
     Indication: Type 2 diabetes mellitus
     Dosage: 1 DOSAGE FORM, BID
     Route: 048

REACTIONS (27)
  - Death [Fatal]
  - Pain [Unknown]
  - Injury [Unknown]
  - Skull fractured base [Unknown]
  - Platelet count decreased [Unknown]
  - Periorbital haematoma [Unknown]
  - Skin laceration [Unknown]
  - Fall [Unknown]
  - Subdural haematoma [Unknown]
  - Hypotension [Unknown]
  - Tachycardia [Unknown]
  - Unresponsive to stimuli [Unknown]
  - Skin haemorrhage [Unknown]
  - Pancreatic disorder [Unknown]
  - Pancytopenia [Unknown]
  - Thrombocytopenia [Unknown]
  - Normocytic anaemia [Unknown]
  - Vomiting [Unknown]
  - Neutropenia [Unknown]
  - Fatigue [Unknown]
  - Decreased appetite [Unknown]
  - Therapeutic response decreased [Unknown]
  - Neutrophil count decreased [Unknown]
  - White blood cell count decreased [Unknown]
  - Prostatic specific antigen increased [Unknown]
  - Weight decreased [Unknown]
  - General physical health deterioration [Unknown]

NARRATIVE: CASE EVENT DATE: 20250622
